FAERS Safety Report 21281741 (Version 2)
Quarter: 2022Q4

REPORT INFORMATION
  Report Type: Report from Study
  Country: RO (occurrence: RO)
  Receive Date: 20220901
  Receipt Date: 20221007
  Transmission Date: 20230112
  Serious: Yes (Hospitalization, Other)
  Sender: FDA-Public Use
  Company Number: RO-ABBVIE-22K-135-4523083-00

PATIENT
  Age: 63 Year
  Sex: Male

DRUGS (2)
  1. HUMIRA [Suspect]
     Active Substance: ADALIMUMAB
     Indication: Psoriatic arthropathy
     Route: 058
     Dates: start: 20160615, end: 20220819
  2. AUGMENTIN [Suspect]
     Active Substance: AMOXICILLIN\CLAVULANATE POTASSIUM
     Indication: Product used for unknown indication
     Route: 048
     Dates: start: 20220926

REACTIONS (7)
  - Retinal tear [Recovered/Resolved]
  - Visual impairment [Not Recovered/Not Resolved]
  - COVID-19 [Recovering/Resolving]
  - Limb injury [Not Recovered/Not Resolved]
  - Gout [Not Recovered/Not Resolved]
  - Abdominal pain upper [Recovered/Resolved]
  - Accident at home [Not Recovered/Not Resolved]

NARRATIVE: CASE EVENT DATE: 20220801
